FAERS Safety Report 4769858-0 (Version None)
Quarter: 2005Q3

REPORT INFORMATION
  Report Type: 
  Country: None (occurrence: None)
  Receive Date: 20050912
  Receipt Date: 20050817
  Transmission Date: 20060218
  Serious: No
  Sender: FDA-Public Use
  Company Number: 2005-01410

PATIENT
  Age: 49 Year
  Sex: Female
  Weight: 47.6 kg

DRUGS (9)
  1. VELCADE [Suspect]
     Indication: MULTIPLE MYELOMA
     Dosage: 1.80 MG, INTRAVENOUS
     Route: 042
     Dates: start: 20050321
  2. DOXIL [Suspect]
     Indication: MULTIPLE MYELOMA
     Dates: start: 20050301
  3. CYTOXAN [Concomitant]
  4. PRILOSEC [Concomitant]
  5. VITAMIN B6 [Concomitant]
  6. VITAMIN B COMPLEX (PYRIDOXINE HYDROCHLORIDE, RIBOFLAVIN, CALCIUM PANTO [Concomitant]
  7. MILK THISTLE [Concomitant]
  8. DARVOCET-N (PARACETAMOL, DEXTROPROPOXYPHENE NAPSILATE) [Concomitant]
  9. XANAX [Concomitant]

REACTIONS (4)
  - EYELID PTOSIS [None]
  - NEUROPATHY PERIPHERAL [None]
  - RASH PRURITIC [None]
  - VISUAL DISTURBANCE [None]
